FAERS Safety Report 6972745-0 (Version None)
Quarter: 2010Q3

REPORT INFORMATION
  Report Type: 
  Country: None (occurrence: None)
  Receive Date: 20100907
  Receipt Date: 20100819
  Transmission Date: 20110219
  Serious: Yes (Hospitalization)
  Sender: FDA-Public Use
  Company Number: APP201000669

PATIENT
  Age: 65 Year
  Sex: Female

DRUGS (9)
  1. LIDOCAINE HCL INJ [Suspect]
     Indication: BRONCHOSCOPY
     Dosage: TOTAL OF 10ML
  2. TACROLIMUS [Concomitant]
  3. MYCOPHENOLATE MOFETIL [Concomitant]
  4. PREDNISONE [Concomitant]
  5. DAPSONE [Concomitant]
  6. TRACONAZOLE (ITRACONAZOLE) [Concomitant]
  7. VALGANCICLOVIR HCL [Concomitant]
  8. OMEPRAZOLE [Concomitant]
  9. INSULIN (INSULIN) [Concomitant]

REACTIONS (2)
  - BLOOD METHAEMOGLOBIN PRESENT [None]
  - DYSPNOEA [None]
